FAERS Safety Report 4285889-1 (Version None)
Quarter: 2004Q1

REPORT INFORMATION
  Report Type: 
  Country: None (occurrence: None)
  Receive Date: 20040204
  Receipt Date: 20040204
  Transmission Date: 20041129
  Serious: Yes (Hospitalization)
  Sender: FDA-Public Use
  Company Number: None

PATIENT
  Age: 19 Day
  Sex: Female
  Weight: 3.6 kg

DRUGS (2)
  1. LANSOPRAZOLE [Suspect]
     Indication: GASTROOESOPHAGEAL REFLUX DISEASE
     Dosage: 15 MG ONCE DAILY ORAL
     Route: 048
     Dates: start: 20040120, end: 20040122
  2. RANITIDINE [Suspect]
     Indication: GASTROOESOPHAGEAL REFLUX DISEASE
     Dosage: 15 MG TWICE DAIL ORAL
     Route: 048
     Dates: start: 20040108, end: 20040120

REACTIONS (7)
  - DEPRESSED LEVEL OF CONSCIOUSNESS [None]
  - DRUG INEFFECTIVE [None]
  - FEEDING PROBLEM IN NEWBORN [None]
  - LETHARGY [None]
  - NEONATAL DISORDER [None]
  - SEPSIS [None]
  - SEPSIS NEONATAL [None]
